FAERS Safety Report 8481502-8 (Version None)
Quarter: 2012Q3

REPORT INFORMATION
  Report Type: 
  Country: None (occurrence: None)
  Receive Date: 20120702
  Receipt Date: 20120619
  Transmission Date: 20120928
  Serious: Yes (Hospitalization)
  Sender: FDA-Public Use
  Company Number: BE-JNJFOC-20120410888

PATIENT
  Sex: Male

DRUGS (15)
  1. ABIRATERONE ACETATE [Suspect]
     Indication: PROSTATE CANCER METASTATIC
     Route: 048
     Dates: start: 20100204
  2. MONUROL [Concomitant]
     Indication: URINARY TRACT INFECTION
     Dosage: ONCE ONLY
     Route: 048
     Dates: start: 20120401, end: 20120401
  3. LITICAN [Concomitant]
     Indication: NAUSEA
     Route: 042
     Dates: start: 20120515, end: 20120520
  4. ZOMETA [Concomitant]
     Indication: PROSTATE CANCER
     Route: 065
     Dates: start: 20061201
  5. LYSOMUCIL [Concomitant]
     Indication: BRONCHITIS
     Route: 048
     Dates: start: 20120401, end: 20120401
  6. ABIRATERONE ACETATE [Suspect]
     Route: 048
  7. CALCIUM AND VITAMIN D3 [Concomitant]
     Indication: PROPHYLAXIS
     Route: 048
     Dates: start: 20110418
  8. DAFALGAN FORTE [Concomitant]
     Indication: CANCER PAIN
     Route: 048
     Dates: start: 20120301
  9. TRAMADOL HCL [Concomitant]
     Indication: PNEUMOTHORAX
     Route: 042
     Dates: start: 20120515, end: 20120520
  10. PREDNISOLONE [Suspect]
     Indication: PROSTATE CANCER METASTATIC
     Route: 048
     Dates: start: 20100204
  11. AMOXICILLIN [Concomitant]
     Indication: BRONCHITIS
     Route: 048
     Dates: start: 20120401, end: 20120401
  12. ZOLADEX [Concomitant]
     Indication: HORMONE THERAPY
     Route: 058
     Dates: start: 20061201
  13. RANITIDINE [Concomitant]
     Indication: DYSPEPSIA
     Route: 048
     Dates: start: 20110923
  14. PARACETAMOL [Concomitant]
     Indication: PNEUMOTHORAX
     Route: 042
     Dates: start: 20120514, end: 20120523
  15. DUOVENT [Concomitant]
     Indication: BRONCHITIS
     Route: 055
     Dates: start: 20120401, end: 20120401

REACTIONS (2)
  - MALAISE [None]
  - PNEUMOTHORAX [None]
